FAERS Safety Report 15251729 (Version 2)
Quarter: 2020Q1

REPORT INFORMATION
  Report Type: Spontaneous
  Country: US (occurrence: US)
  Receive Date: 20180807
  Receipt Date: 20200108
  Transmission Date: 20200409
  Serious: Yes (Life-Threatening, Hospitalization)
  Sender: FDA-Public Use
  Company Number: US-MYLANLABS-2018M1059141

PATIENT
  Age: 20 Year
  Sex: Female
  Weight: 60 kg

DRUGS (2)
  1. HYDROXYCHLOROQUINE [Suspect]
     Active Substance: HYDROXYCHLOROQUINE
     Indication: PRODUCT USED FOR UNKNOWN INDICATION
     Dosage: 36 GRAM, TOTAL
     Route: 048
  2. POTASSIUM CHLORIDE. [Suspect]
     Active Substance: POTASSIUM CHLORIDE
     Indication: HYPOKALAEMIA
     Dosage: TOTAL 200MEQ IN FIRST 12H...
     Route: 065

REACTIONS (11)
  - Hyperkalaemia [Recovered/Resolved]
  - QRS axis abnormal [Recovered/Resolved]
  - Conduction disorder [Recovered/Resolved]
  - Overdose [Recovered/Resolved]
  - Toxicity to various agents [Recovered/Resolved]
  - Hypokalaemia [Recovered/Resolved]
  - Ventricular tachyarrhythmia [Recovered/Resolved]
  - Ventricular tachycardia [Recovered/Resolved]
  - Sinus tachycardia [Recovered/Resolved]
  - Electrocardiogram QT prolonged [Recovered/Resolved]
  - Mental status changes [Recovered/Resolved]
